FAERS Safety Report 10210678 (Version 1)
Quarter: 2014Q2

REPORT INFORMATION
  Report Type: Spontaneous
  Country: US (occurrence: None)
  Receive Date: 20140529
  Receipt Date: 20140529
  Transmission Date: 20141212
  Serious: Yes (Other)
  Sender: FDA-Public Use
  Company Number: None

PATIENT
  Age: 55 Year
  Sex: Male

DRUGS (5)
  1. VELCADE [Suspect]
     Indication: PLASMA CELL MYELOMA
     Dosage: 8 WEEKS IN LATE 2011
     Dates: start: 2011
  2. KYPROLIS [Concomitant]
  3. DEXAMETHASONE [Concomitant]
  4. REVLIMID [Concomitant]
  5. CYTOXAN [Concomitant]

REACTIONS (2)
  - Drug ineffective [None]
  - Neutrophil count decreased [None]
